FAERS Safety Report 20859684 (Version 2)
Quarter: 2022Q2

REPORT INFORMATION
  Report Type: Spontaneous
  Country: JP (occurrence: JP)
  Receive Date: 20220523
  Receipt Date: 20220620
  Transmission Date: 20220720
  Serious: Yes (Other)
  Sender: FDA-Public Use
  Company Number: JP-CHUGAI-2022017871

PATIENT
  Age: 77 Year
  Sex: Female

DRUGS (4)
  1. AVASTIN [Suspect]
     Active Substance: BEVACIZUMAB
     Indication: Colorectal cancer
     Dosage: UNK
     Route: 041
     Dates: start: 20220412
  2. AVASTIN [Suspect]
     Active Substance: BEVACIZUMAB
     Indication: Rectal cancer
  3. XELODA [Suspect]
     Active Substance: CAPECITABINE
     Indication: Colorectal cancer
     Dosage: 1800 MILLIGRAM, BID
     Route: 048
     Dates: start: 20220412, end: 20220510
  4. XELODA [Suspect]
     Active Substance: CAPECITABINE
     Indication: Rectal cancer

REACTIONS (1)
  - Creatinine renal clearance decreased [Recovered/Resolved]
